FAERS Safety Report 4887252-9 (Version None)
Quarter: 2005Q4

REPORT INFORMATION
  Report Type: 
  Country: None (occurrence: None)
  Receive Date: 20051221
  Receipt Date: 20051114
  Transmission Date: 20060501
  Serious: No
  Sender: FDA-Public Use
  Company Number: US-YAMANOUCHI-YPA20050575

PATIENT
  Age: 71 Year
  Sex: Male

DRUGS (14)
  1. VESICARE [Suspect]
     Indication: HYPERTONIC BLADDER
     Dosage: 5 MG PO
     Route: 048
  2. GLUCOVANCE [Concomitant]
  3. INSULIN [Concomitant]
  4. PRILOSEC [Concomitant]
  5. REGLAN [Concomitant]
  6. HYDROCHLOROTHIAZIDE [Concomitant]
  7. METOPROLOL [Concomitant]
  8. HYTRIN [Concomitant]
  9. FLOMAX [Concomitant]
  10. AMITRIPTYLINE HCL [Concomitant]
  11. ADVAIR DISKUS 100/50 [Concomitant]
  12. SPIRIVA [Concomitant]
  13. RHINOCORT [Concomitant]
  14. ALBUTEROL SULFATE AUTOHALER [Concomitant]

REACTIONS (1)
  - BLOOD GLUCOSE INCREASED [None]
